FAERS Safety Report 13966119 (Version 1)
Quarter: 2017Q3

REPORT INFORMATION
  Report Type: Spontaneous
  Country: BE (occurrence: BE)
  Receive Date: 20170913
  Receipt Date: 20170913
  Transmission Date: 20171128
  Serious: Yes (Death, Other)
  Sender: FDA-Public Use
  Company Number: BE-PFIZER INC-2002SE06098

PATIENT
  Age: 75 Year
  Sex: Female

DRUGS (9)
  1. TEICOPLANIN [Interacting]
     Active Substance: TEICOPLANIN
     Indication: SEPTIC SHOCK
     Dosage: 800 MG, DAILY
  2. AMIKACIN [Concomitant]
     Active Substance: AMIKACIN
     Dosage: UNK
  3. CEFOTAXIME [Interacting]
     Active Substance: CEFOTAXIME SODIUM
     Dosage: UNK
     Route: 042
  4. CEPHALOSPORIN C [Concomitant]
     Active Substance: CEPHALOSPORIN C
     Dosage: UNK
  5. CLAVULANIC ACID [Concomitant]
     Active Substance: CLAVULANIC ACID
     Dosage: UNK
  6. FLUCONAZOLE. [Concomitant]
     Active Substance: FLUCONAZOLE
     Dosage: UNK
  7. AMOXICILLIN. [Concomitant]
     Active Substance: AMOXICILLIN
     Dosage: UNK
  8. MEROPENEM. [Suspect]
     Active Substance: MEROPENEM
     Indication: SEPTIC SHOCK
     Dosage: 1 G, 2X/DAY
     Route: 042
  9. CIPROFLOXACIN. [Concomitant]
     Active Substance: CIPROFLOXACIN
     Dosage: UNK

REACTIONS (2)
  - Toxic epidermal necrolysis [Fatal]
  - Drug interaction [Fatal]
